FAERS Safety Report 9037233 (Version 1)
Quarter: 2013Q1

REPORT INFORMATION
  Report Type: Spontaneous
  Country: US (occurrence: None)
  Receive Date: 20130123
  Receipt Date: 20130123
  Transmission Date: 20140127
  Serious: Yes (Other)
  Sender: FDA-Public Use
  Company Number: None

PATIENT
  Age: 60 None
  Sex: Male

DRUGS (1)
  1. PEGASYS 180MCG GENENTECH [Suspect]
     Indication: HEPATITIS C
     Route: 058
     Dates: start: 20120224, end: 20130121

REACTIONS (11)
  - Depression [None]
  - Psychotic disorder [None]
  - Mania [None]
  - Abdominal pain upper [None]
  - Hyperhidrosis [None]
  - Chills [None]
  - Fatigue [None]
  - Weight decreased [None]
  - Stomatitis [None]
  - Oral herpes [None]
  - Aphagia [None]
